FAERS Safety Report 25118491 (Version 2)
Quarter: 2025Q2

REPORT INFORMATION
  Report Type: Spontaneous
  Country: US (occurrence: US)
  Receive Date: 20250325
  Receipt Date: 20250516
  Transmission Date: 20250717
  Serious: No
  Sender: PFIZER
  Company Number: US-PFIZER INC-202500006734

PATIENT
  Age: 64 Year
  Sex: Male
  Weight: 71.21 kg

DRUGS (2)
  1. TESTOSTERONE CYPIONATE [Suspect]
     Active Substance: TESTOSTERONE CYPIONATE
     Indication: Blood testosterone decreased
     Dosage: 0.6 ML, WEEKLY
  2. TESTOSTERONE CYPIONATE [Suspect]
     Active Substance: TESTOSTERONE CYPIONATE

REACTIONS (5)
  - Product quality issue [Unknown]
  - Product deposit [Unknown]
  - Product colour issue [Unknown]
  - Poor quality product administered [Unknown]
  - Injection site pain [Unknown]
